FAERS Safety Report 23662961 (Version 1)
Quarter: 2024Q1

REPORT INFORMATION
  Report Type: Spontaneous
  Country: US (occurrence: None)
  Receive Date: 20240322
  Receipt Date: 20240322
  Transmission Date: 20240410
  Serious: Yes (Hospitalization)
  Sender: FDA-Public Use
  Company Number: None

PATIENT
  Age: 78 Year
  Sex: Female
  Weight: 67.5 kg

DRUGS (2)
  1. CARBOPLATIN [Suspect]
     Active Substance: CARBOPLATIN
     Dates: end: 20240122
  2. TAXOL [Suspect]
     Active Substance: PACLITAXEL
     Dates: end: 20240122

REACTIONS (5)
  - Inappropriate antidiuretic hormone secretion [None]
  - Blood magnesium decreased [None]
  - Nausea [None]
  - Feeling abnormal [None]
  - Economic problem [None]

NARRATIVE: CASE EVENT DATE: 20240212
